FAERS Safety Report 4414706-1 (Version None)
Quarter: 2004Q3

REPORT INFORMATION
  Report Type: 
  Country: None (occurrence: None)
  Receive Date: 20040804
  Receipt Date: 20030707
  Transmission Date: 20050211
  Serious: No
  Sender: FDA-Public Use
  Company Number: US-BRISTOL-MYERS SQUIBB COMPANY-12319026

PATIENT
  Age: 67 Year
  Sex: Male
  Weight: 107 kg

DRUGS (4)
  1. GLUCOVANCE [Suspect]
     Indication: DIABETES MELLITUS NON-INSULIN-DEPENDENT
     Route: 048
  2. DIOVAN [Concomitant]
  3. ZETIA [Concomitant]
  4. ALLOPURINOL [Concomitant]

REACTIONS (3)
  - BLOOD GLUCOSE DECREASED [None]
  - RASH PRURITIC [None]
  - SKIN INFECTION [None]
